FAERS Safety Report 4433887-7 (Version None)
Quarter: 2004Q3

REPORT INFORMATION
  Report Type: 
  Country: None (occurrence: None)
  Receive Date: 20040826
  Receipt Date: 20040824
  Transmission Date: 20050211
  Serious: Yes (Hospitalization)
  Sender: FDA-Public Use
  Company Number: 2004016101

PATIENT
  Age: 41 Year
  Sex: Male
  Weight: 60 kg

DRUGS (4)
  1. QUILONUM RETARD [Suspect]
     Dosage: 70TAB SINGLE DOSE
     Route: 048
  2. AMITRIPTYLIN [Suspect]
     Dosage: 75TAB SINGLE DOSE
     Route: 048
  3. BEER [Suspect]
     Dosage: 4BT SINGLE DOSE
     Route: 048
  4. WINE [Suspect]
     Route: 048

REACTIONS (6)
  - DIARRHOEA [None]
  - FATIGUE [None]
  - INTENTIONAL OVERDOSE [None]
  - MYOCLONUS [None]
  - SUICIDE ATTEMPT [None]
  - VOMITING [None]
